FAERS Safety Report 9786253 (Version 1)
Quarter: 2013Q4

REPORT INFORMATION
  Report Type: Spontaneous
  Country: GB (occurrence: None)
  Receive Date: 20131223
  Receipt Date: 20131223
  Transmission Date: 20140711
  Serious: Yes (Other)
  Sender: FDA-Public Use
  Company Number: 2013P1021955

PATIENT
  Age: 30 Year
  Sex: Male

DRUGS (2)
  1. CITALOPRAM [Suspect]
     Indication: DEPRESSION
  2. CITALOPRAM [Suspect]
     Indication: ANXIETY DISORDER

REACTIONS (6)
  - Dizziness [None]
  - Anxiety [None]
  - Sperm concentration decreased [None]
  - Spermatozoa progressive motility decreased [None]
  - Spermatozoa morphology abnormal [None]
  - Insomnia [None]
